FAERS Safety Report 23653430 (Version 2)
Quarter: 2024Q1

REPORT INFORMATION
  Report Type: Spontaneous
  Country: US (occurrence: US)
  Receive Date: 20240320
  Receipt Date: 20240325
  Transmission Date: 20240410
  Serious: No
  Sender: FDA-Public Use
  Company Number: US-PFIZER INC-202101879729

PATIENT
  Age: 8 Year
  Sex: Male

DRUGS (1)
  1. GENOTROPIN [Suspect]
     Active Substance: SOMATROPIN
     Dosage: 0.7 MG, DAILY
     Dates: start: 20211228

REACTIONS (3)
  - Product administration error [Unknown]
  - Product storage error [Unknown]
  - Device breakage [Unknown]

NARRATIVE: CASE EVENT DATE: 20210101
